FAERS Safety Report 20881469 (Version 1)
Quarter: 2022Q2

REPORT INFORMATION
  Report Type: Spontaneous
  Country: US (occurrence: US)
  Receive Date: 20220526
  Receipt Date: 20220526
  Transmission Date: 20220720
  Serious: No
  Sender: FDA-Public Use
  Company Number: US-RADIUS HEALTH INC.-2022US001650

PATIENT
  Sex: Female
  Weight: 52.608 kg

DRUGS (1)
  1. TYMLOS [Suspect]
     Active Substance: ABALOPARATIDE
     Indication: Senile osteoporosis
     Dosage: 80 MICROGRAM, QD
     Route: 058
     Dates: start: 202108

REACTIONS (5)
  - Joint swelling [Unknown]
  - Pain in extremity [Unknown]
  - Muscle spasms [Unknown]
  - Bone pain [Unknown]
  - Blood uric acid increased [Unknown]
